FAERS Safety Report 9224172 (Version 1)
Quarter: 2013Q1

REPORT INFORMATION
  Report Type: Spontaneous
  Country: US (occurrence: None)
  Receive Date: 20120914
  Receipt Date: 20120914
  Transmission Date: 20140127
  Serious: No
  Sender: FDA-Public Use
  Company Number: JPI-P-018255

PATIENT
  Sex: 0

DRUGS (2)
  1. XYREM [Suspect]
     Indication: NARCOLEPSY
     Dosage: 4/5 GM (2.25 GM, 2 IN 1 D), ORAL
     Dates: start: 20110607, end: 2011
  2. NARCOTICS [Suspect]

REACTIONS (1)
  - Drug abuse [None]
